FAERS Safety Report 4658874-5 (Version None)
Quarter: 2005Q2

REPORT INFORMATION
  Report Type: 
  Country: None (occurrence: None)
  Receive Date: 20050509
  Receipt Date: 20050428
  Transmission Date: 20051028
  Serious: Yes (Death)
  Sender: FDA-Public Use
  Company Number: 2005-04-2094

PATIENT

DRUGS (4)
  1. NASONEX [Suspect]
     Dosage: NASAL SPRAY
  2. AERIUS (DESLORATADINE) TABLETS [Suspect]
     Dosage: ORAL
     Route: 048
  3. EZETROL (EZETIMIBE) TABLETS [Suspect]
     Dosage: ORAL
     Route: 048
     Dates: start: 20040401
  4. CRESTOR [Suspect]

REACTIONS (1)
  - MYALGIA [None]
